FAERS Safety Report 19704987 (Version 2)
Quarter: 2022Q3

REPORT INFORMATION
  Report Type: Spontaneous
  Country: US (occurrence: US)
  Receive Date: 20210816
  Receipt Date: 20220919
  Transmission Date: 20221027
  Serious: Yes (Death, Other)
  Sender: FDA-Public Use
  Company Number: US-SA-SAC20210813000937

PATIENT
  Age: 46 Year
  Sex: Male

DRUGS (1)
  1. ZANTAC [Suspect]
     Active Substance: RANITIDINE HYDROCHLORIDE
     Indication: Dyspepsia
     Dosage: UNK, QW
     Dates: start: 201001, end: 201701

REACTIONS (4)
  - Bladder cancer stage IV [Fatal]
  - Renal cancer [Fatal]
  - Lung carcinoma cell type unspecified stage IV [Fatal]
  - Prostate cancer [Fatal]

NARRATIVE: CASE EVENT DATE: 20160201
